FAERS Safety Report 12784399 (Version 1)
Quarter: 2016Q3

REPORT INFORMATION
  Report Type: Spontaneous
  Country: CA (occurrence: CA)
  Receive Date: 20160927
  Receipt Date: 20160927
  Transmission Date: 20161109
  Serious: Yes (Other)
  Sender: FDA-Public Use
  Company Number: CA-BEH-2013036961

PATIENT
  Age: 81 Year
  Sex: Female

DRUGS (1)
  1. PRIVIGEN [Suspect]
     Active Substance: HUMAN IMMUNOGLOBULIN G
     Indication: CHRONIC LYMPHOCYTIC LEUKAEMIA
     Route: 042
     Dates: start: 20120605, end: 20120605

REACTIONS (3)
  - Back pain [Unknown]
  - Haemolysis [Unknown]
  - Chills [Unknown]

NARRATIVE: CASE EVENT DATE: 20120605
